FAERS Safety Report 7943865-9 (Version None)
Quarter: 2011Q4

REPORT INFORMATION
  Report Type: 
  Country: None (occurrence: None)
  Receive Date: 20111128
  Receipt Date: 20111003
  Transmission Date: 20120403
  Serious: Yes (Life-Threatening, Hospitalization)
  Sender: FDA-Public Use
  Company Number: US-ROCHE-GNE324350

PATIENT
  Sex: Female
  Weight: 77.18 kg

DRUGS (3)
  1. XOLAIR [Suspect]
     Indication: ASTHMA
     Route: 058
     Dates: start: 20110808, end: 20110909
  2. ADVAIR DISKUS 100/50 [Concomitant]
     Indication: PRODUCT USED FOR UNKNOWN INDICATION
     Dosage: 1 PUFF, BID, DOSE=1 PUFF, DAILY DOSE=2 PUFF
  3. ALVESCO [Concomitant]
     Indication: PRODUCT USED FOR UNKNOWN INDICATION
     Dosage: 2 PUFF, BID, DOSE=2 PUFF, DAILY DOSE=4 PUFF

REACTIONS (2)
  - ASTHMA [None]
  - ANAPHYLACTIC REACTION [None]
